FAERS Safety Report 20591407 (Version 4)
Quarter: 2022Q2

REPORT INFORMATION
  Report Type: Spontaneous
  Country: US (occurrence: US)
  Receive Date: 20220314
  Receipt Date: 20220414
  Transmission Date: 20220721
  Serious: Yes (Other)
  Sender: FDA-Public Use
  Company Number: US-ORGANON-O2203USA001395

PATIENT
  Age: 43 Year
  Sex: Female
  Weight: 60.317 kg

DRUGS (2)
  1. NEXPLANON [Suspect]
     Active Substance: ETONOGESTREL
     Dosage: 1 IMPLANT (LEFT ARM)
     Route: 059
     Dates: start: 20220309, end: 20220309
  2. NEXPLANON [Concomitant]
     Active Substance: ETONOGESTREL
     Dosage: 1 DOSAGE FORM (IMPLANT)
     Route: 059
     Dates: start: 20190310, end: 20220309

REACTIONS (5)
  - Device expulsion [Recovered/Resolved]
  - Device dislocation [Recovered/Resolved]
  - Device difficult to use [Recovered/Resolved]
  - Product quality issue [Unknown]
  - No adverse event [Unknown]

NARRATIVE: CASE EVENT DATE: 20220309
